FAERS Safety Report 8804700 (Version 2)
Quarter: 2013Q1

REPORT INFORMATION
  Report Type: Report from Study
  Country: DE (occurrence: DE)
  Receive Date: 20120924
  Receipt Date: 20130125
  Transmission Date: 20140127
  Serious: Yes (Other)
  Sender: FDA-Public Use
  Company Number: DE-ABBOTT-12P-062-0980687-00

PATIENT
  Sex: Female

DRUGS (2)
  1. HUMIRA [Suspect]
     Indication: CROHN^S DISEASE
     Route: 058
     Dates: start: 20120316, end: 20120720
  2. HUMIRA [Suspect]
     Route: 058
     Dates: start: 2012, end: 20121215

REACTIONS (2)
  - Fistula [Not Recovered/Not Resolved]
  - Drug ineffective [Not Recovered/Not Resolved]
